FAERS Safety Report 24981139 (Version 1)
Quarter: 2025Q1

REPORT INFORMATION
  Report Type: Spontaneous
  Country: US (occurrence: US)
  Receive Date: 20250218
  Receipt Date: 20250218
  Transmission Date: 20250408
  Serious: Yes (Other)
  Sender: COOPERSURGICAL
  Company Number: US-COOPERSURGICAL, INC.-2025CPS000887

PATIENT
  Age: 23 Year
  Sex: Female
  Weight: 47.166 kg

DRUGS (1)
  1. PARAGARD T 380A [Suspect]
     Active Substance: COPPER
     Indication: Contraception
     Route: 015
     Dates: start: 20161202

REACTIONS (17)
  - Reproductive complication associated with device [Not Recovered/Not Resolved]
  - Hysterectomy [Not Recovered/Not Resolved]
  - Device breakage [Not Recovered/Not Resolved]
  - Foreign body in reproductive tract [Not Recovered/Not Resolved]
  - Complication of device removal [Not Recovered/Not Resolved]
  - Embedded device [Not Recovered/Not Resolved]
  - Pain in extremity [Unknown]
  - Stress [Unknown]
  - Anxiety [Unknown]
  - Depression [Unknown]
  - Nerve injury [Unknown]
  - Neuralgia [Unknown]
  - Emotional disorder [Unknown]
  - Abdominal pain upper [Not Recovered/Not Resolved]
  - Pelvic pain [Unknown]
  - Muscle spasms [Not Recovered/Not Resolved]
  - Device dislocation [Unknown]

NARRATIVE: CASE EVENT DATE: 20160201
